FAERS Safety Report 6212120-X (Version None)
Quarter: 2009Q2

REPORT INFORMATION
  Report Type: 
  Country: None (occurrence: None)
  Receive Date: 20090602
  Receipt Date: 20090522
  Transmission Date: 20091009
  Serious: Yes (Hospitalization)
  Sender: FDA-Public Use
  Company Number: PHHY2009NA19961

PATIENT
  Sex: Female
  Weight: 50 kg

DRUGS (1)
  1. ACLASTA [Suspect]
     Dosage: 5 MG, UNK
     Dates: start: 20090520

REACTIONS (11)
  - BLOOD ALBUMIN DECREASED [None]
  - BLOOD CHLORIDE DECREASED [None]
  - BLOOD SODIUM DECREASED [None]
  - BRAIN OEDEMA [None]
  - COMA [None]
  - CONVULSION [None]
  - ELECTROLYTE IMBALANCE [None]
  - GLOMERULAR FILTRATION RATE DECREASED [None]
  - HEADACHE [None]
  - NAUSEA [None]
  - VOMITING [None]
